FAERS Safety Report 4339369-5 (Version None)
Quarter: 2004Q2

REPORT INFORMATION
  Report Type: 
  Country: None (occurrence: None)
  Receive Date: 20040412
  Receipt Date: 20040326
  Transmission Date: 20050107
  Serious: Yes (Hospitalization)
  Sender: FDA-Public Use
  Company Number: 2004SP000058

PATIENT
  Age: 36 Year
  Sex: Male
  Weight: 206.3866 kg

DRUGS (17)
  1. XOPENEX [Suspect]
     Indication: ASTHMA
     Dosage: 1.25 MG; Q6H; INHALATION
     Route: 055
     Dates: start: 20040204, end: 20040205
  2. FLONASE [Concomitant]
  3. PULMICORT [Concomitant]
  4. SEREVENT [Concomitant]
  5. ALBUTEROL [Concomitant]
  6. ALLEGRA [Concomitant]
  7. NASONEX [Concomitant]
  8. SINGULAIR [Concomitant]
  9. ALTACE [Concomitant]
  10. PREDNISONE [Concomitant]
  11. DOXEPIN HCL [Concomitant]
  12. CALCIUM CARBONATE [Concomitant]
  13. ACIPHEX [Concomitant]
  14. SEPTRA DS [Concomitant]
  15. VITAMIN D [Concomitant]
  16. FUROSEMIDE [Concomitant]
  17. OXYGEN [Concomitant]

REACTIONS (3)
  - ABDOMINAL INFECTION [None]
  - ASTHMA [None]
  - CONDITION AGGRAVATED [None]
